FAERS Safety Report 8895975 (Version 3)
Quarter: 2013Q2

REPORT INFORMATION
  Report Type: Spontaneous
  Country: JP (occurrence: JP)
  Receive Date: 20121108
  Receipt Date: 20130523
  Transmission Date: 20140414
  Serious: Yes (Hospitalization)
  Sender: FDA-Public Use
  Company Number: JP-CELGENEUS-087-21880-12103870

PATIENT
  Age: 67 Year
  Sex: Male
  Weight: 61.8 kg

DRUGS (41)
  1. LENADEX [Suspect]
     Dosage: 20 MILLIGRAM
     Route: 065
     Dates: start: 20121030
  2. LENADEX [Suspect]
     Dosage: 20 MILLIGRAM
     Route: 065
     Dates: start: 20130125
  3. LENADEX [Suspect]
     Dosage: 20 MILLIGRAM
     Route: 065
  4. TUMURA NO 68 [Concomitant]
     Indication: HICCUPS
     Route: 065
  5. MEXILETINE HYDROCHLORIDE [Concomitant]
     Indication: PRODUCT USED FOR UNKNOWN INDICATION
     Route: 065
     Dates: start: 20120903
  6. MECOBALAMIN [Concomitant]
     Indication: PRODUCT USED FOR UNKNOWN INDICATION
     Route: 065
     Dates: start: 20120903
  7. TAMSULOSIN HYDROCHLORIDE [Concomitant]
     Indication: PRODUCT USED FOR UNKNOWN INDICATION
     Route: 065
     Dates: start: 20120903
  8. ATENOLOL [Concomitant]
     Indication: PRODUCT USED FOR UNKNOWN INDICATION
     Route: 065
     Dates: start: 20120903
  9. ASPIRINE [Concomitant]
     Indication: PRODUCT USED FOR UNKNOWN INDICATION
     Route: 065
     Dates: start: 20101224
  10. BROTIZOLAM [Concomitant]
     Indication: PRODUCT USED FOR UNKNOWN INDICATION
     Route: 065
     Dates: start: 20120903
  11. CHLORPROMAZINE HYDROCHLORIDE [Concomitant]
     Indication: HICCUPS
     Route: 048
     Dates: start: 20120926, end: 20121114
  12. METOCLOPRAMIDE HYDROCHLORIDE [Concomitant]
     Indication: HICCUPS
     Route: 048
     Dates: start: 20120926
  13. METOCLOPRAMIDE HYDROCHLORIDE [Concomitant]
     Route: 048
     Dates: start: 20121003, end: 20121003
  14. METOCLOPRAMIDE HYDROCHLORIDE [Concomitant]
     Route: 048
     Dates: start: 20121010, end: 20121010
  15. METOCLOPRAMIDE HYDROCHLORIDE [Concomitant]
     Route: 065
     Dates: start: 20121017, end: 20121017
  16. METOCLOPRAMIDE HYDROCHLORIDE [Concomitant]
     Route: 048
     Dates: start: 20121022, end: 20121024
  17. METOCLOPRAMIDE HYDROCHLORIDE [Concomitant]
     Route: 065
     Dates: start: 20121024
  18. METOCLOPRAMIDE HYDROCHLORIDE [Concomitant]
     Route: 048
     Dates: start: 20121031, end: 20121031
  19. EPALRESTAT [Concomitant]
     Indication: PRODUCT USED FOR UNKNOWN INDICATION
     Route: 048
     Dates: start: 20121011
  20. SITAGLIPTIN PHOSPHATE HYDRATE [Concomitant]
     Indication: PRODUCT USED FOR UNKNOWN INDICATION
     Route: 048
     Dates: start: 20121016
  21. ACETAMINOPHEN [Concomitant]
     Indication: PRODUCT USED FOR UNKNOWN INDICATION
     Route: 065
     Dates: start: 20121015
  22. FLUNITRAZEPAM [Concomitant]
     Indication: PRODUCT USED FOR UNKNOWN INDICATION
     Route: 065
     Dates: start: 20120925
  23. MAGNESIUM OXIDE [Concomitant]
     Indication: ADVERSE EVENT
     Route: 065
     Dates: start: 20110111, end: 20120930
  24. MAGNESIUM OXIDE [Concomitant]
     Indication: PRODUCT USED FOR UNKNOWN INDICATION
     Route: 065
     Dates: start: 20121004, end: 20121010
  25. VALACICLOVIR HYDROCHLORIDE [Concomitant]
     Indication: PRODUCT USED FOR UNKNOWN INDICATION
     Route: 065
     Dates: start: 20120927
  26. SOLFAMETHOXAZOLE TRIMETHOPRIM [Concomitant]
     Indication: PRODUCT USED FOR UNKNOWN INDICATION
     Route: 065
     Dates: start: 20121002
  27. CLOTIAZEPAM [Concomitant]
     Indication: PRODUCT USED FOR UNKNOWN INDICATION
     Route: 065
     Dates: start: 20120903
  28. HIRUDOID [Concomitant]
     Indication: PRODUCT USED FOR UNKNOWN INDICATION
     Route: 065
     Dates: start: 20121011, end: 20121114
  29. FAMOTIDINE [Concomitant]
     Indication: PRODUCT USED FOR UNKNOWN INDICATION
     Route: 065
     Dates: start: 20120925
  30. ESOMEPRAZOLE [Concomitant]
     Indication: PRODUCT USED FOR UNKNOWN INDICATION
     Route: 065
     Dates: start: 20121204
  31. PURIFIED SODIUM HYLURONATE [Concomitant]
     Indication: PRODUCT USED FOR UNKNOWN INDICATION
     Route: 065
     Dates: start: 20121101
  32. PEONY LICORICE WATER EXTRACT GRANULES [Concomitant]
     Indication: PRODUCT USED FOR UNKNOWN INDICATION
     Route: 065
     Dates: start: 20121022, end: 20121024
  33. OFLOXACIN [Concomitant]
     Indication: ADVERSE EVENT
     Route: 065
     Dates: start: 20121015
  34. DIPHENHYDRAMINE [Concomitant]
     Indication: ADVERSE EVENT
     Route: 065
     Dates: start: 20121029, end: 20121130
  35. CEFCAPENE-PIVOXIL HYDROCHLORIDE HYDRATE [Concomitant]
     Indication: PRODUCT USED FOR UNKNOWN INDICATION
     Route: 065
     Dates: start: 20121031, end: 20121102
  36. REVLIMID [Suspect]
     Indication: PLASMA CELL MYELOMA
     Dosage: 15 MILLIGRAM
     Route: 048
     Dates: start: 20120925, end: 20121001
  37. REVLIMID [Suspect]
     Dosage: 20 MILLIGRAM
     Route: 048
     Dates: start: 20121009, end: 20121016
  38. REVLIMID [Suspect]
     Dosage: 15 MILLIGRAM
     Route: 048
     Dates: start: 20121023
  39. LENADEX [Suspect]
     Indication: PLASMA CELL MYELOMA
     Dosage: 20 MILLIGRAM
     Route: 048
     Dates: start: 20120925
  40. LENADEX [Suspect]
     Route: 065
     Dates: start: 20121009
  41. LENADEX [Suspect]
     Dosage: 20 MILLIGRAM
     Route: 065
     Dates: start: 20121016

REACTIONS (2)
  - Neuropathy peripheral [Recovered/Resolved]
  - Hyperglycaemia [Recovered/Resolved]
